FAERS Safety Report 25150232 (Version 1)
Quarter: 2025Q2

REPORT INFORMATION
  Report Type: Spontaneous
  Country: US (occurrence: US)
  Receive Date: 20250402
  Receipt Date: 20250402
  Transmission Date: 20250716
  Serious: No
  Sender: TEVA
  Company Number: US-TEVA-VS-3310672

PATIENT
  Age: 11 Month
  Sex: Male

DRUGS (1)
  1. PIMECROLIMUS [Suspect]
     Active Substance: PIMECROLIMUS
     Indication: Eczema
     Route: 065

REACTIONS (2)
  - Drug ineffective [Unknown]
  - Product use issue [Unknown]
